FAERS Safety Report 6932812-4 (Version None)
Quarter: 2010Q3

REPORT INFORMATION
  Report Type: 
  Country: None (occurrence: None)
  Receive Date: 20100819
  Receipt Date: 20100813
  Transmission Date: 20110219
  Serious: Yes (Life-Threatening, Hospitalization, Other)
  Sender: FDA-Public Use
  Company Number: ES-CUBIST-2010S1000181

PATIENT
  Age: 81 Year
  Sex: Male

DRUGS (1)
  1. CUBICIN [Suspect]
     Indication: DEVICE RELATED INFECTION
     Dates: start: 20100212, end: 20100408

REACTIONS (4)
  - BRONCHOPNEUMONIA [None]
  - CARDIO-RESPIRATORY ARREST [None]
  - MITRAL VALVE INCOMPETENCE [None]
  - PULMONARY HYPERTENSION [None]
